FAERS Safety Report 9333445 (Version 1)
Quarter: 2013Q2

REPORT INFORMATION
  Report Type: Spontaneous
  Country: US (occurrence: None)
  Receive Date: 20130604
  Receipt Date: 20130604
  Transmission Date: 20140414
  Serious: Yes (Hospitalization)
  Sender: FDA-Public Use
  Company Number: JPI-P-030923

PATIENT
  Age: 52 Year
  Sex: Male

DRUGS (5)
  1. XYREM (500 MILLIGRAM/MILLILITERS, SOLUTION) (SODIUM OXYBATE) [Suspect]
     Indication: NARCOLEPSY
     Route: 048
     Dates: start: 20100820
  2. CITALOPRAM [Concomitant]
  3. AMITRIPTYLINE [Concomitant]
  4. PRAMIPEXOLE DIHYDROCHLORIDE [Concomitant]
  5. ASPIRIN [Concomitant]

REACTIONS (3)
  - Groin pain [None]
  - Back pain [None]
  - Functional gastrointestinal disorder [None]
